FAERS Safety Report 5214232-6 (Version None)
Quarter: 2007Q1

REPORT INFORMATION
  Report Type: 
  Country: None (occurrence: None)
  Receive Date: 20070122
  Receipt Date: 20070115
  Transmission Date: 20070707
  Serious: Yes (Other)
  Sender: FDA-Public Use
  Company Number: IN-BRISTOL-MYERS SQUIBB COMPANY-13643028

PATIENT
  Age: 54 Year
  Sex: Male

DRUGS (3)
  1. BARACLUDE [Suspect]
     Indication: HEPATITIS B
     Route: 048
     Dates: start: 20061001
  2. FUROSEMIDE [Concomitant]
  3. SPIRONOLACTONE [Concomitant]

REACTIONS (1)
  - CEREBROVASCULAR ACCIDENT [None]
